FAERS Safety Report 25411556 (Version 1)
Quarter: 2025Q2

REPORT INFORMATION
  Report Type: Spontaneous
  Country: US (occurrence: US)
  Receive Date: 20250609
  Receipt Date: 20250609
  Transmission Date: 20250716
  Serious: No
  Sender: LUPIN
  Company Number: US-LUPIN PHARMACEUTICALS INC.-2025-04613

PATIENT
  Age: 68 Year

DRUGS (1)
  1. GAVILYTE G [Suspect]
     Active Substance: POLYETHYLENE GLYCOL 3350\POTASSIUM CHLORIDE\SODIUM BICARBONATE\SODIUM CHLORIDE\SODIUM SULFATE
     Indication: Colonoscopy

REACTIONS (5)
  - Feeling abnormal [Unknown]
  - Asthenia [Unknown]
  - Dizziness [Unknown]
  - Blood glucose increased [Unknown]
  - Wrong technique in product usage process [Unknown]
